FAERS Safety Report 7851490-3 (Version None)
Quarter: 2011Q4

REPORT INFORMATION
  Report Type: 
  Country: None (occurrence: None)
  Receive Date: 20111026
  Receipt Date: 20111021
  Transmission Date: 20120403
  Serious: Yes (Other)
  Sender: FDA-Public Use
  Company Number: GB-ROCHE-616236

PATIENT
  Sex: Male
  Weight: 104 kg

DRUGS (5)
  1. XELODA [Suspect]
     Indication: COLON CANCER
     Dosage: FOR 14 DAYS OF EACH 21 DAY CYCLE (2.5G BID) DATE FO LAST DOSE ADMISTRATION: 13/FEB/2009
     Route: 048
     Dates: start: 20081125, end: 20111021
  2. ATENOLOL [Concomitant]
     Indication: HYPERTENSION
     Route: 048
  3. AMLODIPINE [Concomitant]
     Indication: HYPERTENSION
     Route: 048
  4. MOUTHWASH NOS [Concomitant]
     Dosage: CORSADYL MOUTHWASH
     Route: 048
  5. AVASTIN [Suspect]
     Indication: COLON CANCER
     Route: 042

REACTIONS (1)
  - HYPERLIPIDAEMIA [None]
